FAERS Safety Report 22107634 (Version 1)
Quarter: 2023Q1

REPORT INFORMATION
  Report Type: Spontaneous
  Country: GB (occurrence: GB)
  Receive Date: 20230317
  Receipt Date: 20230317
  Transmission Date: 20230417
  Serious: Yes (Other)
  Sender: FDA-Public Use
  Company Number: None

PATIENT
  Age: 27 Year
  Sex: Female

DRUGS (1)
  1. DICLOFENAC [Suspect]
     Active Substance: DICLOFENAC
     Indication: Ill-defined disorder
     Route: 065
     Dates: start: 20230228

REACTIONS (1)
  - Type I hypersensitivity [Unknown]

NARRATIVE: CASE EVENT DATE: 20230306
